FAERS Safety Report 5785407-2 (Version None)
Quarter: 2008Q2

REPORT INFORMATION
  Report Type: 
  Country: None (occurrence: None)
  Receive Date: 20080605
  Receipt Date: 20080218
  Transmission Date: 20081010
  Serious: No
  Sender: FDA-Public Use
  Company Number: A0710204A

PATIENT

DRUGS (2)
  1. ALLI [Suspect]
     Indication: DRUG USE FOR UNKNOWN INDICATION
  2. IBUROFEN [Concomitant]

REACTIONS (3)
  - ABDOMINAL PAIN UPPER [None]
  - FLATULENCE [None]
  - PAIN [None]
